FAERS Safety Report 17504982 (Version 1)
Quarter: 2020Q1

REPORT INFORMATION
  Report Type: Spontaneous
  Country: FR (occurrence: FR)
  Receive Date: 20200305
  Receipt Date: 20200305
  Transmission Date: 20200409
  Serious: Yes (Hospitalization)
  Sender: FDA-Public Use
  Company Number: NVSC2020FR060487

PATIENT

DRUGS (11)
  1. ONDANSETRON [Suspect]
     Active Substance: ONDANSETRON
     Indication: PROPHYLAXIS OF NAUSEA AND VOMITING
     Dosage: 50 UG/KG
     Route: 065
  2. PROFENID [Suspect]
     Active Substance: KETOPROFEN
     Indication: ANALGESIC THERAPY
     Dosage: UNK
     Route: 065
  3. SULFENTANYL [Suspect]
     Active Substance: SUFENTANIL
     Indication: ANALGESIC THERAPY
     Dosage: UNK
     Route: 042
  4. ATRACURIUM BESILATE [Suspect]
     Active Substance: ATRACURIUM BESYLATE
     Indication: NEUROMUSCULAR BLOCKING THERAPY
     Dosage: UNK
     Route: 065
  5. MIDAZOLAM HYDROCHLORIDE. [Suspect]
     Active Substance: MIDAZOLAM HYDROCHLORIDE
     Indication: PREMEDICATION
     Dosage: 5 MG/KG
     Route: 054
  6. DEXAMETHASONE. [Suspect]
     Active Substance: DEXAMETHASONE
     Indication: PROPHYLAXIS OF NAUSEA AND VOMITING
     Dosage: 150 UG/KG
     Route: 065
  7. MORPHINE [Suspect]
     Active Substance: MORPHINE
     Indication: PAIN
     Dosage: UNK
     Route: 065
  8. NITROUS OXIDE. [Suspect]
     Active Substance: NITROUS OXIDE
     Indication: GENERAL ANAESTHESIA
     Dosage: UNK
     Route: 055
  9. PROPOFOL. [Suspect]
     Active Substance: PROPOFOL
     Indication: ANAESTHESIA
     Dosage: 10 MG/KG, QH
     Route: 041
  10. DROPERIDOL. [Suspect]
     Active Substance: DROPERIDOL
     Indication: PROPHYLAXIS OF NAUSEA AND VOMITING
     Dosage: 50?75 MICROGRAM/KG
     Route: 065
  11. PARACETAMOL [Suspect]
     Active Substance: ACETAMINOPHEN
     Indication: ANALGESIC THERAPY
     Dosage: UNK
     Route: 065

REACTIONS (2)
  - Procedural nausea [Unknown]
  - Procedural vomiting [Unknown]
